FAERS Safety Report 17961277 (Version 1)
Quarter: 2020Q2

REPORT INFORMATION
  Report Type: Spontaneous
  Country: US (occurrence: US)
  Receive Date: 20200629
  Receipt Date: 20200629
  Transmission Date: 20200714
  Serious: No
  Sender: FDA-Public Use
  Company Number: US-ROCHE-2412474

PATIENT
  Age: 41 Year
  Sex: Female

DRUGS (2)
  1. CAPECITABINE. [Suspect]
     Active Substance: CAPECITABINE
     Dosage: GIVEN IN 2 DIVIDED DOSES (2 WEEKS ON, 2 WEEKS OFF).
     Route: 048
     Dates: start: 200003
  2. CAPECITABINE. [Suspect]
     Active Substance: CAPECITABINE
     Indication: METASTASES TO CENTRAL NERVOUS SYSTEM
     Dosage: 2 WEEKS ON, 1 WEEK OFF
     Route: 048
     Dates: start: 199905

REACTIONS (1)
  - Palmar-plantar erythrodysaesthesia syndrome [Unknown]
